FAERS Safety Report 6998237-0 (Version None)
Quarter: 2010Q3

REPORT INFORMATION
  Report Type: 
  Country: None (occurrence: None)
  Receive Date: 20100920
  Receipt Date: 20100527
  Transmission Date: 20110219
  Serious: Yes (Other)
  Sender: FDA-Public Use
  Company Number: US-ASTRAZENECA-2007UW10335

PATIENT
  Sex: Female

DRUGS (5)
  1. SEROQUEL [Suspect]
     Dosage: 300 MG 1 TABLET AT BEDTIME FOR 3 DAYS
     Route: 048
     Dates: start: 20060320
  2. SEROQUEL [Suspect]
     Dosage: 300 MG 2 TABLET AT BEDTIME
     Route: 048
     Dates: start: 20060323
  3. FLUOXETINE [Concomitant]
     Route: 048
     Dates: start: 20060413
  4. HYDROXYZINE PAM [Concomitant]
     Route: 048
     Dates: start: 20060320
  5. LORAZEPAM [Concomitant]
     Route: 048
     Dates: start: 20061207

REACTIONS (3)
  - DIABETES MELLITUS [None]
  - KETOACIDOSIS [None]
  - PANCREATITIS [None]
